FAERS Safety Report 24131476 (Version 1)
Quarter: 2024Q3

REPORT INFORMATION
  Report Type: Spontaneous
  Country: US (occurrence: US)
  Receive Date: 20240724
  Receipt Date: 20240724
  Transmission Date: 20241017
  Serious: Yes (Other)
  Sender: NOVARTIS
  Company Number: US-002147023-NVSC2024US149641

PATIENT
  Age: 38 Year
  Sex: Female

DRUGS (1)
  1. COSENTYX [Suspect]
     Active Substance: SECUKINUMAB
     Indication: Product used for unknown indication
     Dosage: 300 MG, QW
     Route: 065

REACTIONS (5)
  - Pneumonia [Unknown]
  - Cough [Unknown]
  - Illness [Unknown]
  - Immune system disorder [Unknown]
  - Product storage error [Unknown]

NARRATIVE: CASE EVENT DATE: 20240714
